FAERS Safety Report 16688611 (Version 1)
Quarter: 2019Q3

REPORT INFORMATION
  Report Type: Spontaneous
  Country: US (occurrence: US)
  Receive Date: 20190809
  Receipt Date: 20190809
  Transmission Date: 20191004
  Serious: No
  Sender: FDA-Public Use
  Company Number: US-PURDUE-USA-2019-0147206

PATIENT
  Age: 68 Year
  Sex: Female

DRUGS (2)
  1. BUTRANS [Suspect]
     Active Substance: BUPRENORPHINE
     Indication: NEUROPATHY PERIPHERAL
     Dosage: 15 MCG/HR, WEEKLY
     Route: 062
     Dates: start: 201902
  2. BUTRANS [Suspect]
     Active Substance: BUPRENORPHINE
     Indication: PAIN
     Dosage: 10 MCG/HR, WEEKLY
     Route: 062
     Dates: start: 2017, end: 201902

REACTIONS (2)
  - Inadequate analgesia [Not Recovered/Not Resolved]
  - Pain [Not Recovered/Not Resolved]

NARRATIVE: CASE EVENT DATE: 20180515
